FAERS Safety Report 5010096-4 (Version None)
Quarter: 2006Q2

REPORT INFORMATION
  Report Type: 
  Country: None (occurrence: None)
  Receive Date: 20060404
  Receipt Date: 20051115
  Transmission Date: 20061013
  Serious: No
  Sender: FDA-Public Use
  Company Number: US200511001678

PATIENT
  Age: 30 Year
  Sex: Male

DRUGS (1)
  1. CYMBALTA [Suspect]
     Indication: DEPRESSION
     Dosage: 60 MG, EACH EVENING
     Dates: start: 20051001

REACTIONS (2)
  - SOMNOLENCE [None]
  - TINNITUS [None]
